FAERS Safety Report 6566871-8 (Version None)
Quarter: 2010Q1

REPORT INFORMATION
  Report Type: 
  Country: None (occurrence: None)
  Receive Date: 20100202
  Receipt Date: 20100127
  Transmission Date: 20100710
  Serious: Yes (Life-Threatening)
  Sender: FDA-Public Use
  Company Number: B0629834A

PATIENT
  Sex: Female
  Weight: 60 kg

DRUGS (5)
  1. LAPATINIB [Suspect]
     Dosage: 1000MG PER DAY
     Route: 048
     Dates: start: 20090626
  2. CAPECITABINE [Suspect]
     Dosage: 800MG PER DAY
     Dates: start: 20090626
  3. PRAZEPAM [Concomitant]
     Indication: ANXIETY
     Route: 048
     Dates: start: 20090626
  4. SKENAN [Concomitant]
     Route: 048
     Dates: start: 20090706
  5. INIPOMP [Concomitant]
     Indication: REFLUX GASTRITIS
     Route: 048
     Dates: start: 20090701

REACTIONS (1)
  - HYPOCALCAEMIA [None]
